FAERS Safety Report 4293524-1 (Version None)
Quarter: 2004Q1

REPORT INFORMATION
  Report Type: 
  Country: None (occurrence: None)
  Receive Date: 20040126
  Receipt Date: 20030829
  Transmission Date: 20041129
  Serious: No
  Sender: FDA-Public Use
  Company Number: USA030945838

PATIENT
  Age: 56 Year
  Sex: Female

DRUGS (7)
  1. FORTEO [Suspect]
     Indication: OSTEOPOROSIS
     Dosage: 20 UG/DAY
     Dates: start: 20030828
  2. EVISTA [Concomitant]
  3. ACIPHEX [Concomitant]
  4. ULTRACET [Concomitant]
  5. CELEBREX [Concomitant]
  6. VITAMIN E [Concomitant]
  7. CALCIUM WITH VITAMIN D [Concomitant]

REACTIONS (3)
  - CARDIAC DISORDER [None]
  - FEELING ABNORMAL [None]
  - NAUSEA [None]
